FAERS Safety Report 21795505 (Version 7)
Quarter: 2025Q3

REPORT INFORMATION
  Report Type: Report from Study
  Country: US (occurrence: US)
  Receive Date: 20221229
  Receipt Date: 20250825
  Transmission Date: 20251020
  Serious: Yes (Other)
  Sender: TAKEDA
  Company Number: US-TAKEDA-US202030049

PATIENT
  Sex: Female

DRUGS (4)
  1. HUMAN IMMUNOGLOBULIN G [Suspect]
     Active Substance: HUMAN IMMUNOGLOBULIN G
     Indication: Primary immunodeficiency syndrome
  2. HUMAN IMMUNOGLOBULIN G [Suspect]
     Active Substance: HUMAN IMMUNOGLOBULIN G
     Indication: Immunodeficiency common variable
  3. HUMAN IMMUNOGLOBULIN G [Suspect]
     Active Substance: HUMAN IMMUNOGLOBULIN G
  4. HUMAN IMMUNOGLOBULIN G [Suspect]
     Active Substance: HUMAN IMMUNOGLOBULIN G

REACTIONS (22)
  - Atypical pneumonia [Recovering/Resolving]
  - Sjogren^s syndrome [Unknown]
  - Systemic lupus erythematosus [Unknown]
  - Fatigue [Unknown]
  - Infection [Unknown]
  - Food allergy [Recovering/Resolving]
  - Irritable bowel syndrome [Unknown]
  - Platelet count abnormal [Unknown]
  - Frustration tolerance decreased [Unknown]
  - Nasal ulcer [Unknown]
  - Ear infection [Unknown]
  - Sinusitis [Unknown]
  - Stomatitis [Unknown]
  - Epistaxis [Unknown]
  - Asthenia [Unknown]
  - Anxiety [Unknown]
  - Hypersensitivity [Unknown]
  - Myalgia [Unknown]
  - Paranasal sinus haemorrhage [Not Recovered/Not Resolved]
  - Lip dry [Unknown]
  - Ear dryness [Unknown]
  - COVID-19 [Recovered/Resolved]

NARRATIVE: CASE EVENT DATE: 20210101
